FAERS Safety Report 21257848 (Version 1)
Quarter: 2022Q3

REPORT INFORMATION
  Report Type: Spontaneous
  Country: US (occurrence: US)
  Receive Date: 20220826
  Receipt Date: 20220826
  Transmission Date: 20221027
  Serious: No
  Sender: FDA-Public Use
  Company Number: US-BRISTOL-MYERS SQUIBB COMPANY-2022-096526

PATIENT
  Age: 73 Year
  Sex: Male
  Weight: 54.3 kg

DRUGS (1)
  1. REVLIMID [Suspect]
     Active Substance: LENALIDOMIDE
     Indication: Plasma cell myeloma
     Dosage: 5MG 7DAYS ON 7 DAYS OFF EVERY OTHER WEEK FOR 28 DAYS.
     Route: 048
     Dates: start: 20211021

REACTIONS (2)
  - Full blood count decreased [Unknown]
  - Intentional product use issue [Unknown]
